FAERS Safety Report 5467192-7 (Version None)
Quarter: 2007Q3

REPORT INFORMATION
  Report Type: 
  Country: None (occurrence: None)
  Receive Date: 20070925
  Receipt Date: 20070913
  Transmission Date: 20080115
  Serious: Yes (Hospitalization)
  Sender: FDA-Public Use
  Company Number: GB-ROCHE-519024

PATIENT
  Age: 69 Year
  Sex: Male

DRUGS (2)
  1. CAPECITABINE [Suspect]
     Route: 065
  2. ELOXATIN [Suspect]
     Route: 065

REACTIONS (1)
  - PERIPHERAL ISCHAEMIA [None]
